FAERS Safety Report 12854473 (Version 1)
Quarter: 2016Q4

REPORT INFORMATION
  Report Type: Spontaneous
  Country: CN (occurrence: CN)
  Receive Date: 20161017
  Receipt Date: 20161017
  Transmission Date: 20170207
  Serious: Yes (Life-Threatening)
  Sender: FDA-Public Use
  Company Number: CN-FRESENIUS KABI-FK201607660

PATIENT
  Sex: Female

DRUGS (1)
  1. INTRALIPID [Suspect]
     Active Substance: EGG PHOSPHOLIPIDS\GLYCERIN\SOYBEAN OIL
     Indication: NUTRITIONAL SUPPLEMENTATION
     Route: 041
     Dates: start: 20160528, end: 20160528

REACTIONS (5)
  - Dyspnoea [None]
  - Chest discomfort [Recovered/Resolved]
  - Tachypnoea [Recovered/Resolved]
  - Infusion related reaction [None]
  - Blood pressure increased [None]

NARRATIVE: CASE EVENT DATE: 20160528
